FAERS Safety Report 9073058 (Version 1)
Quarter: 2013Q1

REPORT INFORMATION
  Report Type: Report from Study
  Country: US (occurrence: US)
  Receive Date: 20130129
  Receipt Date: 20130129
  Transmission Date: 20140127
  Serious: Yes (Hospitalization)
  Sender: FDA-Public Use
  Company Number: US-ABBOTT-12P-163-0930900-00

PATIENT
  Age: 16 Year
  Sex: Female

DRUGS (6)
  1. HUMIRA 40 MG/0.8 ML PEN [Suspect]
     Indication: CROHN^S DISEASE
     Dates: start: 20120201
  2. PREDNISONE [Concomitant]
     Indication: GASTROINTESTINAL DISORDER
     Route: 048
  3. PENTASA [Concomitant]
     Indication: GASTROINTESTINAL DISORDER
     Dosage: 3 TABLETS IN AM; 2 IN EVENING
     Route: 048
  4. CIPRO [Concomitant]
     Indication: GASTROINTESTINAL DISORDER
     Route: 048
  5. NEXIUM [Concomitant]
     Indication: GASTROINTESTINAL DISORDER
     Route: 048
  6. IMURAN [Concomitant]
     Indication: GASTROINTESTINAL DISORDER
     Dosage: AT BEDTIME
     Route: 048

REACTIONS (1)
  - Rectal abscess [Not Recovered/Not Resolved]
